FAERS Safety Report 4778123-7 (Version None)
Quarter: 2005Q3

REPORT INFORMATION
  Report Type: 
  Country: None (occurrence: None)
  Receive Date: 20050922
  Receipt Date: 20050912
  Transmission Date: 20060218
  Serious: Yes (Hospitalization)
  Sender: FDA-Public Use
  Company Number: BASF-05-012

PATIENT
  Age: 56 Year
  Sex: Female

DRUGS (1)
  1. ALLOPURINOL [Suspect]
     Indication: GOUT
     Dosage: 1 TABLET PO, QD
     Route: 048
     Dates: start: 20050321, end: 20050422

REACTIONS (9)
  - CORNEAL DISORDER [None]
  - HYPOTRICHOSIS [None]
  - ONYCHOMADESIS [None]
  - PHARYNGOLARYNGEAL PAIN [None]
  - RENAL DISORDER [None]
  - SCAR [None]
  - SKIN DISCOLOURATION [None]
  - STEVENS-JOHNSON SYNDROME [None]
  - VISUAL DISTURBANCE [None]
